FAERS Safety Report 7516882-0 (Version None)
Quarter: 2011Q2

REPORT INFORMATION
  Report Type: 
  Country: None (occurrence: None)
  Receive Date: 20110601
  Receipt Date: 20110524
  Transmission Date: 20111010
  Serious: Yes (Hospitalization, Other)
  Sender: FDA-Public Use
  Company Number: FR-ABBOTT-11P-056-0717212-00

PATIENT
  Sex: Male

DRUGS (14)
  1. FOSCAVIR [Concomitant]
     Indication: PRODUCT USED FOR UNKNOWN INDICATION
  2. CYMEVAN [Concomitant]
     Indication: PRODUCT USED FOR UNKNOWN INDICATION
  3. FORTIMEL [Concomitant]
  4. POTASSIUM CHLORIDE [Concomitant]
     Indication: PRODUCT USED FOR UNKNOWN INDICATION
  5. ISENTRESS [Suspect]
     Indication: HIV INFECTION
     Route: 048
     Dates: start: 20101213
  6. DEXERYL [Concomitant]
     Indication: PRODUCT USED FOR UNKNOWN INDICATION
  7. FUNGIZONE [Concomitant]
     Indication: PRODUCT USED FOR UNKNOWN INDICATION
  8. SODIUM CHLORIDE [Concomitant]
     Indication: PRODUCT USED FOR UNKNOWN INDICATION
  9. POTASSIUM CHLORIDE [Concomitant]
     Indication: PRODUCT USED FOR UNKNOWN INDICATION
  10. CALCIUM GLUCONATE [Concomitant]
     Indication: PRODUCT USED FOR UNKNOWN INDICATION
  11. NORVIR [Suspect]
     Indication: HIV INFECTION
     Route: 048
     Dates: start: 20101213
  12. PREZISTA [Suspect]
     Indication: HIV INFECTION
     Route: 048
     Dates: start: 20101213
  13. POTASSIUM CHLORIDE [Concomitant]
  14. FORTIMEL [Concomitant]
     Indication: PRODUCT USED FOR UNKNOWN INDICATION

REACTIONS (15)
  - EOSINOPHILIA [None]
  - GENITAL ULCERATION [None]
  - PYREXIA [None]
  - HYPERBILIRUBINAEMIA [None]
  - PROTEUS INFECTION [None]
  - ASPARTATE AMINOTRANSFERASE INCREASED [None]
  - CYTOMEGALOVIRUS INFECTION [None]
  - HYPONATRAEMIA [None]
  - DIABETES MELLITUS [None]
  - DRY SKIN [None]
  - ALANINE AMINOTRANSFERASE INCREASED [None]
  - DERMATITIS EXFOLIATIVE [None]
  - LYMPHOCYTE MORPHOLOGY ABNORMAL [None]
  - DRUG RASH WITH EOSINOPHILIA AND SYSTEMIC SYMPTOMS [None]
  - STAPHYLOCOCCAL SEPSIS [None]
